FAERS Safety Report 17047631 (Version 1)
Quarter: 2019Q4

REPORT INFORMATION
  Report Type: Spontaneous
  Country: PL (occurrence: PL)
  Receive Date: 20191118
  Receipt Date: 20191118
  Transmission Date: 20200122
  Serious: Yes (Death)
  Sender: FDA-Public Use
  Company Number: None

PATIENT
  Age: 65 Year
  Sex: Female

DRUGS (9)
  1. HYDROCODONE/ACETAMINOPHEN [Concomitant]
     Active Substance: ACETAMINOPHEN\HYDROCODONE
     Dates: start: 20191017
  2. ZOLEDRONIC ACID [Concomitant]
     Active Substance: ZOLEDRONIC ACID
     Dates: start: 20191105, end: 20191105
  3. LEUCOVORIN. [Suspect]
     Active Substance: LEUCOVORIN
     Indication: GASTROINTESTINAL CARCINOMA
     Dosage: ?          OTHER FREQUENCY:Q2W;?
     Route: 042
     Dates: end: 20191107
  4. NAPROXEN. [Concomitant]
     Active Substance: NAPROXEN
     Dates: start: 20190915
  5. BENAZEPRIL [Concomitant]
     Active Substance: BENAZEPRIL HYDROCHLORIDE
     Dates: start: 20050101
  6. HYDROCHLOROTHYAZIDE [Concomitant]
     Active Substance: HYDROCHLOROTHIAZIDE
     Dates: start: 20050101
  7. PANTOPRAZOLE SODIUM. [Concomitant]
     Active Substance: PANTOPRAZOLE SODIUM
     Dates: start: 20190901
  8. OXALIPLATIN. [Suspect]
     Active Substance: OXALIPLATIN
  9. 5-FLUOROURACIL [Suspect]
     Active Substance: FLUOROURACIL

REACTIONS (5)
  - Disease progression [None]
  - Death [None]
  - Asthenia [None]
  - Fall [None]
  - Cardiac arrest [None]

NARRATIVE: CASE EVENT DATE: 20191109
